FAERS Safety Report 12909754 (Version 2)
Quarter: 2016Q4

REPORT INFORMATION
  Report Type: Report from Study
  Country: BR (occurrence: BR)
  Receive Date: 20161104
  Receipt Date: 20161130
  Transmission Date: 20170207
  Serious: Yes (Other)
  Sender: FDA-Public Use
  Company Number: PHHY2015BR098570

PATIENT
  Sex: Female
  Weight: 40 kg

DRUGS (12)
  1. SIMVASTATIN. [Concomitant]
     Active Substance: SIMVASTATIN
     Indication: BLOOD CHOLESTEROL INCREASED
     Dosage: 1 DF, QD, 5 YEARS AGO
     Route: 048
  2. EXJADE [Suspect]
     Active Substance: DEFERASIROX
     Indication: SICKLE CELL ANAEMIA
     Dosage: 10 MG/KG, QD, 750 MG (1 TABLET OF 500 MG AND 1 TABLET OF 250 MG)
     Route: 048
  3. EXJADE [Suspect]
     Active Substance: DEFERASIROX
     Dosage: 10 MG/KG, QD (500 MG)
     Route: 048
  4. EXJADE [Suspect]
     Active Substance: DEFERASIROX
     Dosage: 250 MG, UNK
     Route: 048
     Dates: start: 201611
  5. LOSARTAN. [Concomitant]
     Active Substance: LOSARTAN
     Indication: PRODUCT USED FOR UNKNOWN INDICATION
     Dosage: UNK
     Route: 065
  6. LEVOTHYROXINE. [Concomitant]
     Active Substance: LEVOTHYROXINE
     Indication: PRODUCT USED FOR UNKNOWN INDICATION
     Dosage: UNK
     Route: 065
  7. HYDROCHLOROTHIAZIDE. [Concomitant]
     Active Substance: HYDROCHLOROTHIAZIDE
     Indication: PERIPHERAL SWELLING
     Dosage: 25 MG, QD, 10 YEARS AGO
     Route: 048
  8. PURAN [Concomitant]
     Active Substance: LEVOTHYROXINE SODIUM
     Indication: HYPOTHYROIDISM
     Dosage: 1 DF, QD 10YEARS AGO
     Route: 048
  9. HEMOCE [Concomitant]
     Indication: ANAEMIA
     Dosage: UNK
     Route: 065
  10. ARADOIS [Concomitant]
     Active Substance: LOSARTAN POTASSIUM
     Indication: HYPERTENSION
     Dosage: 1 DF, QD
     Route: 048
  11. EXJADE [Suspect]
     Active Substance: DEFERASIROX
     Dosage: 5 MG/KG, QD (250 MG)
     Route: 048
  12. FOLIC ACID. [Concomitant]
     Active Substance: FOLIC ACID
     Indication: SICKLE CELL ANAEMIA
     Dosage: 1 DF, QD, 22 YEARS AGO

REACTIONS (18)
  - Asthenia [Recovering/Resolving]
  - Helminthic infection [Unknown]
  - Platelet count decreased [Recovering/Resolving]
  - Paraesthesia [Unknown]
  - Bleeding varicose vein [Unknown]
  - Abdominal discomfort [Unknown]
  - Blood pressure decreased [Unknown]
  - Decreased appetite [Recovering/Resolving]
  - Malaise [Recovering/Resolving]
  - Malnutrition [Recovering/Resolving]
  - Feeding disorder [Recovering/Resolving]
  - Fear [Recovering/Resolving]
  - Varicose vein ruptured [Unknown]
  - Vomiting [Recovering/Resolving]
  - Blood iron decreased [Unknown]
  - Parosmia [Recovering/Resolving]
  - Nausea [Recovering/Resolving]
  - Drug intolerance [Unknown]
